FAERS Safety Report 6765059-5 (Version None)
Quarter: 2010Q2

REPORT INFORMATION
  Report Type: 
  Country: None (occurrence: None)
  Receive Date: 20100609
  Receipt Date: 20100609
  Transmission Date: 20101027
  Serious: Yes (Life-Threatening, Hospitalization)
  Sender: FDA-Public Use
  Company Number: None

PATIENT
  Age: 61 Year
  Sex: 0
  Weight: 76 kg

DRUGS (2)
  1. LISINOPRIL [Suspect]
     Indication: ANGIOEDEMA
     Dosage: 5 MG EVERY DAY PO
     Route: 048
     Dates: start: 20100503, end: 20100601
  2. LISINOPRIL [Suspect]
     Indication: ATRIAL FIBRILLATION
     Dosage: 5 MG EVERY DAY PO
     Route: 048
     Dates: start: 20100503, end: 20100601

REACTIONS (1)
  - ANGIOEDEMA [None]
